FAERS Safety Report 20130161 (Version 1)
Quarter: 2021Q4

REPORT INFORMATION
  Report Type: Other
  Country: US (occurrence: None)
  Receive Date: 20211130
  Receipt Date: 20211130
  Transmission Date: 20220303
  Serious: Yes (Other)
  Sender: FDA-Public Use
  Company Number: US-ROCHE-2960474

PATIENT
  Sex: Female
  Weight: 45.309 kg

DRUGS (28)
  1. OCREVUS [Suspect]
     Active Substance: OCRELIZUMAB
     Indication: Relapsing-remitting multiple sclerosis
     Dosage: NO
     Route: 042
     Dates: start: 201805, end: 202010
  2. OCREVUS [Suspect]
     Active Substance: OCRELIZUMAB
     Dosage: NO
     Route: 042
     Dates: start: 202010, end: 20210618
  3. OCREVUS [Suspect]
     Active Substance: OCRELIZUMAB
     Route: 042
     Dates: start: 20210618
  4. LEVALBUTEROL [Concomitant]
     Active Substance: LEVALBUTEROL
     Indication: Asthma
     Dosage: 0.03 MG/3 ML AS NEEDED ;ONGOING: YES
     Route: 055
     Dates: start: 2020
  5. NEXPLANON [Concomitant]
     Active Substance: ETONOGESTREL
     Indication: Contraception
     Dosage: YES
     Dates: start: 20210330
  6. NEXPLANON [Concomitant]
     Active Substance: ETONOGESTREL
     Indication: Haemorrhage
  7. PREGABALIN [Concomitant]
     Active Substance: PREGABALIN
     Indication: Neuropathy peripheral
     Dosage: YES
     Route: 048
  8. MAGNESIUM [MAGNESIUM OXIDE] [Concomitant]
     Dosage: YES
     Route: 048
  9. VITAMIN D3 [Concomitant]
     Active Substance: CHOLECALCIFEROL
     Dosage: YES
     Route: 048
  10. MINERALS\VITAMINS [Concomitant]
     Active Substance: MINERALS\VITAMINS
     Dosage: YES
  11. THERATEARS [Concomitant]
     Active Substance: CARBOXYMETHYLCELLULOSE SODIUM
     Indication: Dry eye
     Dosage: 1 DROP EACH EYE ;ONGOING: YES
     Route: 047
  12. ATORVASTATIN [Concomitant]
     Active Substance: ATORVASTATIN
     Indication: Blood cholesterol increased
     Dosage: YES
     Route: 048
  13. TYLENOL EXTRA STRENGTH [Concomitant]
     Active Substance: ACETAMINOPHEN
     Indication: Pain
     Dosage: YES
     Route: 048
  14. TUMS [Concomitant]
     Active Substance: CALCIUM CARBONATE
     Indication: Gastrooesophageal reflux disease
     Dosage: YES
     Route: 048
  15. MECLIZINE [Concomitant]
     Active Substance: MECLIZINE HYDROCHLORIDE
     Indication: Vertigo
     Dosage: YES
     Route: 048
  16. ESOMEPRAZOLE MAGNESIUM [Concomitant]
     Active Substance: ESOMEPRAZOLE MAGNESIUM
     Indication: Gastrooesophageal reflux disease
     Dosage: YES
     Route: 048
     Dates: start: 2020
  17. CLONIDINE HYDROCHLORIDE [Concomitant]
     Active Substance: CLONIDINE HYDROCHLORIDE
     Indication: Hypertension
     Dosage: YES
     Route: 048
  18. OXYBUTYNIN [Concomitant]
     Active Substance: OXYBUTYNIN
     Indication: Micturition urgency
     Dosage: YES
     Route: 048
  19. AMLODIPINE BESYLATE [Concomitant]
     Active Substance: AMLODIPINE BESYLATE
     Indication: Hypertension
     Dosage: YES
     Route: 048
  20. AMANTADINE [Concomitant]
     Active Substance: AMANTADINE
     Indication: Fatigue
     Dosage: NO
     Dates: end: 2020
  21. BREO ELLIPTA [Concomitant]
     Active Substance: FLUTICASONE FUROATE\VILANTEROL TRIFENATATE
     Indication: Asthma
     Dosage: 200/25 MCG 1 PUFF ONCE A DAY ;ONGOING: YES
     Route: 055
  22. FISH OIL [Concomitant]
     Active Substance: FISH OIL
     Indication: Constipation
     Dosage: YES
     Route: 048
  23. FLONASE [Concomitant]
     Active Substance: FLUTICASONE PROPIONATE
     Indication: Hypersensitivity
     Dosage: 2 SQUIRTS EACH NOSTRIL TWICE DAILY ;ONGOING: YES
     Route: 045
     Dates: start: 2020
  24. BIOTIN [Concomitant]
     Active Substance: BIOTIN
     Dosage: YES
     Route: 048
     Dates: start: 2020
  25. VITAMIN C [Concomitant]
     Active Substance: ASCORBIC ACID
     Dosage: YES
     Route: 048
  26. TACROLIMUS [Concomitant]
     Active Substance: TACROLIMUS
     Indication: Renal transplant
     Dosage: YES
     Route: 048
  27. ASPIRIN [Concomitant]
     Active Substance: ASPIRIN
     Indication: Renal transplant
     Dosage: YES
     Route: 048
     Dates: start: 20100408
  28. MYFORTIC [Concomitant]
     Active Substance: MYCOPHENOLATE SODIUM
     Indication: Renal transplant
     Route: 048
     Dates: start: 20100408

REACTIONS (6)
  - Urinary tract infection [Unknown]
  - Bacterial vaginosis [Not Recovered/Not Resolved]
  - Gastrooesophageal reflux disease [Unknown]
  - Fatigue [Recovering/Resolving]
  - Haemorrhage [Recovered/Resolved with Sequelae]
  - Off label use [Unknown]
